FAERS Safety Report 6447452-3 (Version None)
Quarter: 2009Q4

REPORT INFORMATION
  Report Type: 
  Country: None (occurrence: None)
  Receive Date: 20091119
  Receipt Date: 20091112
  Transmission Date: 20100525
  Serious: Yes (Hospitalization)
  Sender: FDA-Public Use
  Company Number: US-NICOBRDEVP-2009-09821

PATIENT
  Age: 80 Year
  Sex: Female

DRUGS (2)
  1. GELNIQUE (WATSON LABORATORIES) [Suspect]
     Indication: URGE INCONTINENCE
     Dosage: APPLY 1 PACKET, DAILY
     Route: 061
     Dates: start: 20090923, end: 20091021
  2. GELNIQUE (WATSON LABORATORIES) [Suspect]
     Indication: URINARY INCONTINENCE

REACTIONS (2)
  - DIZZINESS [None]
  - FALL [None]
